FAERS Safety Report 6092406-2 (Version None)
Quarter: 2009Q1

REPORT INFORMATION
  Report Type: 
  Country: None (occurrence: None)
  Receive Date: 20090225
  Receipt Date: 20090223
  Transmission Date: 20090719
  Serious: Yes (Life-Threatening, Other)
  Sender: FDA-Public Use
  Company Number: PHHY2009AL06480

PATIENT

DRUGS (4)
  1. EXFORGE [Suspect]
     Dosage: 80 MG VALSARTAN/5 MG AMLODIPINE
  2. NIFEDIPINE [Concomitant]
     Dosage: 30 MG, BID
  3. FUROSEMIDE [Concomitant]
     Dosage: 40 MG, BID
  4. BISOPROLOL FUMARATE [Concomitant]

REACTIONS (3)
  - ERYTHEMA [None]
  - HYPERAEMIA [None]
  - OEDEMA PERIPHERAL [None]
